FAERS Safety Report 4807771-0 (Version None)
Quarter: 2005Q4

REPORT INFORMATION
  Report Type: 
  Country: None (occurrence: None)
  Receive Date: 20051021
  Receipt Date: 20051010
  Transmission Date: 20060501
  Serious: Yes (Other)
  Sender: FDA-Public Use
  Company Number: 800240

PATIENT
  Age: 58 Year
  Sex: Male
  Weight: 138 kg

DRUGS (5)
  1. DIANEAL [Suspect]
     Indication: PERITONEAL DIALYSIS
     Dosage: 2800 CC; CONTINUOUS; IP
     Route: 033
     Dates: start: 20040701
  2. NIFEDIPINE [Concomitant]
  3. TOPROL-XL [Concomitant]
  4. PHOSLO [Concomitant]
  5. PRILOSEC [Concomitant]

REACTIONS (3)
  - PERITONITIS [None]
  - PHARMACEUTICAL PRODUCT COMPLAINT [None]
  - STAPHYLOCOCCAL INFECTION [None]
